FAERS Safety Report 4932955-0 (Version None)
Quarter: 2006Q1

REPORT INFORMATION
  Report Type: 
  Country: None (occurrence: None)
  Receive Date: 20060301
  Receipt Date: 20060301
  Transmission Date: 20060701
  Serious: Yes (Life-Threatening)
  Sender: FDA-Public Use
  Company Number: None

PATIENT
  Age: 52 Year
  Sex: Female

DRUGS (1)
  1. PPD AVENTIS PASTEUR LOT# C2251AA [Suspect]
     Indication: TUBERCULIN TEST
     Dosage: 0.1 ML INTRADERMAL   X 1 DOSE
     Route: 023
     Dates: start: 20060210

REACTIONS (4)
  - RESPIRATORY DISTRESS [None]
  - THROAT TIGHTNESS [None]
  - URTICARIA [None]
  - WHEEZING [None]
